FAERS Safety Report 9177265 (Version 1)
Quarter: 2013Q1

REPORT INFORMATION
  Report Type: Spontaneous
  Country: US (occurrence: None)
  Receive Date: 20130320
  Receipt Date: 20130320
  Transmission Date: 20140127
  Serious: Yes (Hospitalization)
  Sender: FDA-Public Use
  Company Number: None

PATIENT
  Age: 64 Year
  Sex: Male
  Weight: 91.7 kg

DRUGS (2)
  1. ETOPOSIDE [Suspect]
     Indication: PROSTATE CANCER
     Dates: start: 20130304, end: 20130306
  2. CARBOPLATIN [Suspect]
     Indication: PROSTATE CANCER
     Dates: start: 20130304, end: 20130304

REACTIONS (7)
  - Febrile neutropenia [None]
  - Thrombocytopenia [None]
  - Toxicity to various agents [None]
  - Liver function test abnormal [None]
  - Procedural site reaction [None]
  - Urine analysis abnormal [None]
  - Staphylococcal infection [None]
